FAERS Safety Report 8355480-6 (Version None)
Quarter: 2012Q2

REPORT INFORMATION
  Report Type: 
  Country: None (occurrence: None)
  Receive Date: 20120512
  Receipt Date: 20120501
  Transmission Date: 20120825
  Serious: Yes (Death, Hospitalization, Other)
  Sender: FDA-Public Use
  Company Number: US-ELI_LILLY_AND_COMPANY-US201205000495

PATIENT
  Age: 76 Year
  Sex: Female

DRUGS (1)
  1. FORTEO [Suspect]
     Indication: OSTEOPOROSIS
     Dosage: UNK, UNKNOWN

REACTIONS (6)
  - PNEUMONIA [None]
  - GASTRIC POLYPS [None]
  - OXYGEN CONSUMPTION DECREASED [None]
  - BLOOD PRESSURE DECREASED [None]
  - ASPIRATION [None]
  - DEATH [None]
